FAERS Safety Report 13780741 (Version 2)
Quarter: 2017Q3

REPORT INFORMATION
  Report Type: Spontaneous
  Country: US (occurrence: US)
  Receive Date: 20170724
  Receipt Date: 20170726
  Transmission Date: 20171127
  Serious: No
  Sender: FDA-Public Use
  Company Number: US-PFIZER INC-2017320046

PATIENT
  Age: 70 Year
  Sex: Female
  Weight: 108.4 kg

DRUGS (1)
  1. XELJANZ XR [Suspect]
     Active Substance: TOFACITINIB CITRATE
     Indication: RHEUMATOID ARTHRITIS
     Dosage: 11 MG, 1X/DAY (USUALLY MID-MORNING)
     Route: 048
     Dates: start: 20170519

REACTIONS (2)
  - Drug effect delayed [Unknown]
  - Nausea [Unknown]

NARRATIVE: CASE EVENT DATE: 201706
